FAERS Safety Report 10278035 (Version 2)
Quarter: 2014Q4

REPORT INFORMATION
  Report Type: Spontaneous
  Country: US (occurrence: US)
  Receive Date: 20140704
  Receipt Date: 20141017
  Transmission Date: 20150528
  Serious: Yes (Death, Hospitalization)
  Sender: FDA-Public Use
  Company Number: US-JNJFOC-20140702431

PATIENT
  Age: 79 Year
  Sex: Male

DRUGS (2)
  1. CORTICOSTEROID [Suspect]
     Active Substance: CORTICOSTEROID NOS
     Indication: PRODUCT USED FOR UNKNOWN INDICATION
  2. IMBRUVICA [Suspect]
     Active Substance: IBRUTINIB
     Indication: CHRONIC LYMPHOCYTIC LEUKAEMIA
     Route: 065
     Dates: start: 20140310

REACTIONS (9)
  - Fungal infection [Not Recovered/Not Resolved]
  - Neutropenia [Unknown]
  - Meningitis cryptococcal [Fatal]
  - Pleural effusion [Unknown]
  - Diverticulum [Unknown]
  - Acute kidney injury [Not Recovered/Not Resolved]
  - Pneumonia [Not Recovered/Not Resolved]
  - Venous thrombosis [Unknown]
  - Haemorrhage [Unknown]

NARRATIVE: CASE EVENT DATE: 20140427
